FAERS Safety Report 11773206 (Version 1)
Quarter: 2015Q4

REPORT INFORMATION
  Report Type: Spontaneous
  Country: US (occurrence: US)
  Receive Date: 20151124
  Receipt Date: 20151124
  Transmission Date: 20160304
  Serious: No
  Sender: FDA-Public Use
  Company Number: US-TARO-2015TAR00980

PATIENT
  Age: 50 Year
  Sex: Male
  Weight: 108.84 kg

DRUGS (16)
  1. POTASSIUM [Concomitant]
     Active Substance: POTASSIUM
  2. LEVOTHYROXINE. [Concomitant]
     Active Substance: LEVOTHYROXINE
  3. FENOFIBRATE. [Concomitant]
     Active Substance: FENOFIBRATE
  4. BABY ASPIRIN [Concomitant]
     Active Substance: ASPIRIN
  5. POTASSIUM EFFERVESCENT [Concomitant]
  6. CRESTOR [Concomitant]
     Active Substance: ROSUVASTATIN CALCIUM
  7. PHOSPHATE [Concomitant]
     Active Substance: UNSPECIFIED INGREDIENT
  8. NASONEX [Concomitant]
     Active Substance: MOMETASONE FUROATE
  9. ATORVASTATIN [Concomitant]
     Active Substance: ATORVASTATIN
  10. CETIRIZINE [Concomitant]
     Active Substance: CETIRIZINE HYDROCHLORIDE
  11. RITALIN [Concomitant]
     Active Substance: METHYLPHENIDATE HYDROCHLORIDE
  12. MAGNESIUM [Concomitant]
     Active Substance: MAGNESIUM
  13. VALSARTAN. [Concomitant]
     Active Substance: VALSARTAN
  14. OMEGA 3 [Concomitant]
     Active Substance: OMEGA-3 FATTY ACIDS
  15. KEVEYIS [Suspect]
     Active Substance: DICHLORPHENAMIDE
     Indication: PARALYSIS
     Dosage: 50 MG, 2X/DAY
     Route: 048
     Dates: start: 20150922
  16. CLONAZEPAM. [Concomitant]
     Active Substance: CLONAZEPAM

REACTIONS (4)
  - Abdominal pain lower [Recovering/Resolving]
  - Hypersomnia [None]
  - Fatigue [Recovered/Resolved]
  - Hypokalaemia [None]

NARRATIVE: CASE EVENT DATE: 201509
